FAERS Safety Report 22528808 (Version 1)
Quarter: 2023Q2

REPORT INFORMATION
  Report Type: Spontaneous
  Country: IT (occurrence: IT)
  Receive Date: 20230607
  Receipt Date: 20230607
  Transmission Date: 20230722
  Serious: Yes (Other)
  Sender: FDA-Public Use
  Company Number: None

PATIENT
  Age: 50 Year
  Sex: Male
  Weight: 71 kg

DRUGS (11)
  1. VECTIBIX [Suspect]
     Active Substance: PANITUMUMAB
     Indication: Rectal cancer
     Dosage: 400 MILLIGRAM 60 MIN 9TH CYCLE/ 1ST DAY
     Route: 040
     Dates: start: 20211118, end: 20220509
  2. LEUCOVORIN [Suspect]
     Active Substance: LEUCOVORIN
     Indication: Rectal cancer
     Dosage: UNK
     Route: 065
     Dates: start: 20220509
  3. FLUOROURACIL [Suspect]
     Active Substance: FLUOROURACIL
     Indication: Rectal cancer
     Dosage: UNK
     Route: 065
     Dates: start: 20220509
  4. OXALIPLATIN [Suspect]
     Active Substance: OXALIPLATIN
     Indication: Rectal cancer
     Dosage: UNK
     Route: 065
     Dates: start: 20220509
  5. GRANISETRON [Concomitant]
     Active Substance: GRANISETRON
     Indication: Vomiting
     Dosage: 3 MILLIGRAM CHEMOTHERAPY TREATMENT IN DH 9TH CYCLE/1ST DAY
     Route: 040
     Dates: start: 20220509, end: 20220509
  6. FLUOROURACIL [Concomitant]
     Active Substance: FLUOROURACIL
     Indication: Rectal cancer
     Dosage: 600 MILLIGRAM
     Route: 040
     Dates: start: 20211118
  7. FLUOROURACIL [Concomitant]
     Active Substance: FLUOROURACIL
     Dosage: 1800 MILLIGRAM IN 2880 MIN
     Route: 042
     Dates: end: 20220509
  8. OXALIPLATIN [Concomitant]
     Active Substance: OXALIPLATIN
     Indication: Rectal cancer
     Dosage: 9TH CYCLE / 1ST DAY
     Route: 040
     Dates: start: 20211118
  9. OXALIPLATIN [Concomitant]
     Active Substance: OXALIPLATIN
     Dosage: 130 MILLIGRAM
     Route: 042
     Dates: end: 20220509
  10. DEXAMETHASONE [Concomitant]
     Active Substance: DEXAMETHASONE
     Indication: Steroid therapy
     Dosage: 8 MILLIGRAM 9TH CYCLE/1ST DAY
     Route: 040
     Dates: start: 20220509, end: 20220509
  11. GLUTATIONE [Concomitant]
     Indication: Antioxidant therapy
     Dosage: 2.5 MILLIGRAM
     Route: 040
     Dates: start: 20220509, end: 20220509

REACTIONS (2)
  - Metastases to lung [Unknown]
  - Dermatitis acneiform [Recovered/Resolved]

NARRATIVE: CASE EVENT DATE: 20220509
